FAERS Safety Report 24608173 (Version 1)
Quarter: 2024Q4

REPORT INFORMATION
  Report Type: Spontaneous
  Country: US (occurrence: None)
  Receive Date: 20241112
  Receipt Date: 20241112
  Transmission Date: 20250114
  Serious: Yes (Hospitalization)
  Sender: Public
  Company Number: None

PATIENT
  Age: 44 Year
  Sex: Female

DRUGS (1)
  1. ICATIBANT [Suspect]
     Active Substance: ICATIBANT ACETATE
     Indication: Benign soft tissue neoplasm
     Dosage: FREQUENCY : AS NEEDED;?

REACTIONS (2)
  - Hereditary angioedema [None]
  - Laryngeal disorder [None]
